FAERS Safety Report 7260901-6 (Version None)
Quarter: 2011Q1

REPORT INFORMATION
  Report Type: 
  Country: None (occurrence: None)
  Receive Date: 20110130
  Receipt Date: 20101221
  Transmission Date: 20110831
  Serious: No
  Sender: FDA-Public Use
  Company Number: US-ABBOTT-10P-163-0693785-00

PATIENT
  Sex: Female
  Weight: 114.41 kg

DRUGS (11)
  1. HYCOSAMINE [Concomitant]
     Indication: ABDOMINAL PAIN
  2. LEXAPRO [Concomitant]
     Indication: DEPRESSION
  3. AMITRIPTYLINE HCL [Concomitant]
     Indication: PAIN
  4. HYCOSAMINE [Concomitant]
     Indication: PAIN
  5. HUMIRA [Suspect]
     Indication: CROHN'S DISEASE
     Route: 058
  6. LEVOXYL [Concomitant]
     Indication: HYPOTHYROIDISM
  7. UNKNOWN MUSCLE RELAXER [Concomitant]
     Indication: PRODUCT USED FOR UNKNOWN INDICATION
  8. UNKNOWN PAIN MEDICATION [Concomitant]
     Indication: PAIN
  9. SOTALOL HCL [Concomitant]
     Indication: HEART RATE IRREGULAR
  10. BENICAR [Concomitant]
     Indication: HYPERTENSION
  11. ACIPHEX [Concomitant]
     Indication: GASTROOESOPHAGEAL REFLUX DISEASE

REACTIONS (1)
  - INCORRECT DOSE ADMINISTERED [None]
